FAERS Safety Report 17348124 (Version 2)
Quarter: 2020Q1

REPORT INFORMATION
  Report Type: Report from Study
  Country: CO (occurrence: CO)
  Receive Date: 20200130
  Receipt Date: 20200327
  Transmission Date: 20200409
  Serious: Yes (Life-Threatening, Hospitalization, Other)
  Sender: FDA-Public Use
  Company Number: PHHY2015CO115739

PATIENT
  Age: 54 Year
  Sex: Female
  Weight: 79 kg

DRUGS (12)
  1. ACETYLSALICYLIC ACID [Concomitant]
     Active Substance: ASPIRIN
     Indication: PRODUCT USED FOR UNKNOWN INDICATION
     Route: 065
  2. JAKAVI [Suspect]
     Active Substance: RUXOLITINIB
     Dosage: 10 MG (2 TABLETS OF 5 MG), Q12H
     Route: 048
  3. ASAWIN [Concomitant]
     Active Substance: ASPIRIN
     Indication: PRODUCT USED FOR UNKNOWN INDICATION
     Dosage: 100 MG, QD
     Route: 048
  4. JAKAVI [Suspect]
     Active Substance: RUXOLITINIB
     Indication: MYELOFIBROSIS
     Dosage: 30 MG, QD
     Route: 048
     Dates: start: 20150327
  5. JAKAVI [Suspect]
     Active Substance: RUXOLITINIB
     Dosage: 15 MG, BID
     Route: 048
  6. LEVOTHYROXINE. [Concomitant]
     Active Substance: LEVOTHYROXINE
     Indication: BLOOD THYROID STIMULATING HORMONE INCREASED
     Dosage: 50 MG, QD
     Route: 048
  7. LOPRESOR [Suspect]
     Active Substance: METOPROLOL
     Indication: HYPERTENSION
     Dosage: 50 MG, QD
     Route: 048
  8. JAKAVI [Suspect]
     Active Substance: RUXOLITINIB
     Indication: POLYCYTHAEMIA VERA
     Dosage: 15 MG, Q12H (IN THE MORNING AND THE 1 AT NIGHT)
     Route: 048
     Dates: start: 20150820
  9. JAKAVI [Suspect]
     Active Substance: RUXOLITINIB
     Dosage: 5 MG, TID (THREE TIMES A DAY)
     Route: 048
  10. JAKAVI [Suspect]
     Active Substance: RUXOLITINIB
     Dosage: 15 MG, BID (TWICE A DAY)
     Route: 048
  11. JAKAVI [Suspect]
     Active Substance: RUXOLITINIB
     Dosage: 30 MG, QD
     Route: 048
  12. OMEPRAZOLE. [Concomitant]
     Active Substance: OMEPRAZOLE
     Indication: GASTRITIS
     Dosage: 200 MG, QD
     Route: 048

REACTIONS (34)
  - Kidney infection [Not Recovered/Not Resolved]
  - Feeling abnormal [Unknown]
  - Dysuria [Unknown]
  - Skin burning sensation [Unknown]
  - Fluid retention [Unknown]
  - Haemoglobin decreased [Unknown]
  - Fatigue [Unknown]
  - Philadelphia chromosome positive [Unknown]
  - Urine output decreased [Unknown]
  - Weight increased [Unknown]
  - Inappropriate schedule of product administration [Unknown]
  - Gait disturbance [Unknown]
  - White blood cell count decreased [Unknown]
  - Pyrexia [Unknown]
  - Tachycardia [Unknown]
  - Platelet count increased [Unknown]
  - Urinary tract infection bacterial [Not Recovered/Not Resolved]
  - Urine odour abnormal [Unknown]
  - Headache [Unknown]
  - Hypophagia [Unknown]
  - Pruritus [Unknown]
  - White blood cell count increased [Unknown]
  - Chromaturia [Unknown]
  - Cerebral haemorrhage [Unknown]
  - Asthenia [Unknown]
  - Dizziness [Unknown]
  - Skin hypertrophy [Not Recovered/Not Resolved]
  - Hepatic cirrhosis [Unknown]
  - Abdominal pain [Unknown]
  - Asphyxia [Unknown]
  - Liver function test abnormal [Unknown]
  - Platelet count abnormal [Unknown]
  - Rash [Unknown]
  - Acne [Unknown]

NARRATIVE: CASE EVENT DATE: 20150920
